FAERS Safety Report 6957008-1 (Version None)
Quarter: 2010Q3

REPORT INFORMATION
  Report Type: 
  Country: None (occurrence: None)
  Receive Date: 20100827
  Receipt Date: 20100827
  Transmission Date: 20110219
  Serious: Yes (Other)
  Sender: FDA-Public Use
  Company Number: None

PATIENT
  Sex: Female
  Weight: 58 kg

DRUGS (1)
  1. EXEMESTANE [Suspect]
     Dosage: 25MG, PO, 14 DAYS OUT OF 21 DAYS
     Dates: start: 20100629, end: 20100802

REACTIONS (1)
  - COLORECTAL CANCER [None]
